FAERS Safety Report 18938494 (Version 4)
Quarter: 2021Q1

REPORT INFORMATION
  Report Type: Spontaneous
  Country: CA (occurrence: CA)
  Receive Date: 20210224
  Receipt Date: 20210330
  Transmission Date: 20210420
  Serious: Yes (Death, Other)
  Sender: FDA-Public Use
  Company Number: CA-SA-2021SA047660

PATIENT
  Age: 48 Year
  Sex: Female

DRUGS (1)
  1. LOVENOX [Suspect]
     Active Substance: ENOXAPARIN SODIUM
     Indication: PULMONARY EMBOLISM
     Dosage: UNK
     Dates: start: 20210122

REACTIONS (4)
  - Device issue [Unknown]
  - Needle issue [Unknown]
  - Death [Fatal]
  - Unevaluable event [Fatal]

NARRATIVE: CASE EVENT DATE: 20210216
